FAERS Safety Report 12572303 (Version 3)
Quarter: 2016Q3

REPORT INFORMATION
  Report Type: Report from Study
  Country: US (occurrence: US)
  Receive Date: 20160719
  Receipt Date: 20160811
  Transmission Date: 20161109
  Serious: Yes (Hospitalization, Other)
  Sender: FDA-Public Use
  Company Number: US-GILEAD-2016-0223931

PATIENT
  Age: 44 Year
  Sex: Female

DRUGS (2)
  1. DAKLINZA [Concomitant]
     Active Substance: DACLATASVIR
     Indication: HEPATITIS C
  2. SOFOSBUVIR [Suspect]
     Active Substance: SOFOSBUVIR
     Indication: HEPATITIS C
     Dosage: 400 MG, UNK
     Route: 048
     Dates: start: 201606

REACTIONS (9)
  - Osteoporosis [Not Recovered/Not Resolved]
  - Mass [Not Recovered/Not Resolved]
  - Urinary tract infection [Unknown]
  - Musculoskeletal chest pain [Not Recovered/Not Resolved]
  - Menorrhagia [Not Recovered/Not Resolved]
  - Dysuria [Unknown]
  - Painful respiration [Not Recovered/Not Resolved]
  - Throat irritation [Not Recovered/Not Resolved]
  - Uterine neoplasm [Not Recovered/Not Resolved]

NARRATIVE: CASE EVENT DATE: 201607
